FAERS Safety Report 5823492-X (Version None)
Quarter: 2008Q3

REPORT INFORMATION
  Report Type: 
  Country: None (occurrence: None)
  Receive Date: 20080725
  Receipt Date: 20080717
  Transmission Date: 20090109
  Serious: Yes (Other)
  Sender: FDA-Public Use
  Company Number: NL-PFIZER INC-2008060477

PATIENT
  Age: 63 Year
  Sex: Female

DRUGS (3)
  1. IRINOTECAN HCL [Suspect]
     Dosage: DAILY DOSE:520MG
  2. GRANISETRON HCL [Concomitant]
  3. DEXAMETHASONE [Concomitant]

REACTIONS (3)
  - CHOLINERGIC SYNDROME [None]
  - DYSARTHRIA [None]
  - NERVOUS SYSTEM DISORDER [None]
